FAERS Safety Report 4291347-0 (Version None)
Quarter: 2004Q1

REPORT INFORMATION
  Report Type: 
  Country: None (occurrence: None)
  Receive Date: 20040206
  Receipt Date: 20040206
  Transmission Date: 20041129
  Serious: Yes (Life-Threatening, Hospitalization)
  Sender: FDA-Public Use
  Company Number: None

PATIENT
  Age: 65 Year
  Sex: Male
  Weight: 104.7809 kg

DRUGS (5)
  1. OXALIPLATIN [Suspect]
     Indication: COLON CANCER
     Dosage: 150 MG Q 2 WKS IV
     Route: 042
     Dates: start: 20031103
  2. OXALIPLATIN [Suspect]
     Indication: COLON CANCER
     Dosage: 150 MG Q 2 WKS IV
     Route: 042
     Dates: start: 20031201
  3. OXALIPLATIN [Suspect]
     Indication: COLON CANCER
     Dosage: 150 MG Q 2 WKS IV
     Route: 042
     Dates: start: 20031215
  4. OXALIPLATIN [Suspect]
     Indication: COLON CANCER
     Dosage: 150 MG Q 2 WKS IV
     Route: 042
     Dates: start: 20031229
  5. OXALIPLATIN [Suspect]
     Indication: COLON CANCER
     Dosage: 150 MG Q 2 WKS IV
     Route: 042
     Dates: start: 20040112

REACTIONS (2)
  - ATRIAL FIBRILLATION [None]
  - VENTRICULAR TACHYCARDIA [None]
